FAERS Safety Report 13646468 (Version 1)
Quarter: 2017Q2

REPORT INFORMATION
  Report Type: Spontaneous
  Country: US (occurrence: US)
  Receive Date: 20170612
  Receipt Date: 20170612
  Transmission Date: 20170830
  Serious: No
  Sender: FDA-Public Use
  Company Number: None

PATIENT
  Age: 44 Year
  Sex: Female

DRUGS (1)
  1. OMEPRAZOLE. [Suspect]
     Active Substance: OMEPRAZOLE
     Indication: ABDOMINAL DISTENSION
     Route: 048
     Dates: start: 20170609, end: 20170612

REACTIONS (2)
  - Chest discomfort [None]
  - Heart rate increased [None]

NARRATIVE: CASE EVENT DATE: 20170612
